FAERS Safety Report 13234591 (Version 2)
Quarter: 2017Q1

REPORT INFORMATION
  Report Type: Spontaneous
  Country: US (occurrence: US)
  Receive Date: 20170215
  Receipt Date: 20170223
  Transmission Date: 20170428
  Serious: No
  Sender: FDA-Public Use
  Company Number: US-PFIZER INC-2017062163

PATIENT
  Age: 42 Year
  Sex: Female

DRUGS (1)
  1. XELJANZ XR [Suspect]
     Active Substance: TOFACITINIB CITRATE
     Dosage: 11 MG, DAILY [Q DAY]
     Route: 048
     Dates: start: 20170116, end: 20170218

REACTIONS (3)
  - Cough [Unknown]
  - Decreased appetite [Unknown]
  - Condition aggravated [Unknown]
